FAERS Safety Report 8782517 (Version 2)
Quarter: 2013Q4

REPORT INFORMATION
  Report Type: Spontaneous
  Country: FR (occurrence: FR)
  Receive Date: 20120913
  Receipt Date: 20131031
  Transmission Date: 20140711
  Serious: Yes (Hospitalization)
  Sender: FDA-Public Use
  Company Number: FR-009507513-1209FRA002589

PATIENT
  Age: 75 Year
  Sex: Male
  Weight: 80 kg

DRUGS (5)
  1. CELESTENE [Suspect]
     Indication: ARTHRITIS
     Dosage: 2 MG, BID
     Route: 048
     Dates: start: 20120808, end: 20120812
  2. CELESTENE [Suspect]
     Dosage: 2 MG, QD
     Route: 048
     Dates: start: 20120812, end: 20120816
  3. CELESTENE [Suspect]
     Dosage: 0.5 DF, QD
     Route: 048
     Dates: start: 20120816
  4. BIPRETERAX (INDAPAMIDE (+) PERINDOPRIL ARGININE) [Concomitant]
     Indication: HYPERTENSION
  5. AMLOR [Concomitant]
     Indication: HYPERTENSION
     Dosage: UNK

REACTIONS (2)
  - Confusional state [Unknown]
  - Hyponatraemia [Unknown]
